FAERS Safety Report 5818588-2 (Version None)
Quarter: 2008Q3

REPORT INFORMATION
  Report Type: 
  Country: None (occurrence: None)
  Receive Date: 20080717
  Receipt Date: 20080708
  Transmission Date: 20090109
  Serious: Yes (Hospitalization)
  Sender: FDA-Public Use
  Company Number: 163-20785-08041810

PATIENT
  Age: 11 Year
  Sex: Female

DRUGS (11)
  1. THALOMID [Suspect]
     Indication: JUVENILE ARTHRITIS
     Dosage: 50 MG, 1 IN 1 D, ORAL
     Route: 048
     Dates: start: 20080404, end: 20080415
  2. KINERET [Suspect]
     Indication: DRUG USE FOR UNKNOWN INDICATION
     Dosage: 100 MG, DAILY, SUBCUTANEOUS
     Route: 058
  3. IBUPROFEN [Concomitant]
  4. NAPROXEN [Concomitant]
  5. PREDNISONE (PREDNISONE) [Concomitant]
  6. ZYRTEC [Concomitant]
  7. BENADRYL [Concomitant]
  8. HYDROXYZINE [Concomitant]
  9. CYCLOSPORINE [Concomitant]
  10. CEFTRIAXONE [Concomitant]
  11. VANCOMYCIN [Concomitant]

REACTIONS (11)
  - ALANINE AMINOTRANSFERASE INCREASED [None]
  - ASPARTATE AMINOTRANSFERASE INCREASED [None]
  - BLOOD PRESSURE DECREASED [None]
  - DRUG INEFFECTIVE [None]
  - HAEMOGLOBIN DECREASED [None]
  - HISTIOCYTOSIS HAEMATOPHAGIC [None]
  - INFLAMMATION [None]
  - JUVENILE ARTHRITIS [None]
  - PRURITUS [None]
  - RASH ERYTHEMATOUS [None]
  - VOMITING [None]
